FAERS Safety Report 19002916 (Version 2)
Quarter: 2021Q1

REPORT INFORMATION
  Report Type: Other
  Country: CA (occurrence: CA)
  Receive Date: 20210312
  Receipt Date: 20210322
  Transmission Date: 20210420
  Serious: Yes (Other)
  Sender: FDA-Public Use
  Company Number: CA-INTERCEPT-PM2021000391

PATIENT
  Age: 57 Year
  Sex: Male
  Weight: 82 kg

DRUGS (5)
  1. OCALIVA [Suspect]
     Active Substance: OBETICHOLIC ACID
     Indication: PRIMARY BILIARY CHOLANGITIS
     Dosage: 5 MILLIGRAM, QD
     Route: 048
     Dates: start: 20191129, end: 20210309
  2. NOVORAPID [Concomitant]
     Active Substance: INSULIN ASPART
  3. RAMIPRIL. [Concomitant]
     Active Substance: RAMIPRIL
  4. TRESIBA [Concomitant]
     Active Substance: INSULIN DEGLUDEC
  5. URSO [Concomitant]
     Active Substance: URSODIOL
     Indication: PRIMARY BILIARY CHOLANGITIS
     Dosage: 1000 MILLIGRAM, QD (EVERY MORNING)

REACTIONS (8)
  - Drug interaction [Unknown]
  - Blood alkaline phosphatase increased [Unknown]
  - Diarrhoea [Not Recovered/Not Resolved]
  - Alanine aminotransferase increased [Unknown]
  - Diabetes mellitus [Not Recovered/Not Resolved]
  - Localised infection [Not Recovered/Not Resolved]
  - Blood bilirubin increased [Unknown]
  - Pruritus [Not Recovered/Not Resolved]

NARRATIVE: CASE EVENT DATE: 20210209
